FAERS Safety Report 10901173 (Version 1)
Quarter: 2015Q1

REPORT INFORMATION
  Report Type: Report from Study
  Country: BR (occurrence: BR)
  Receive Date: 20150310
  Receipt Date: 20150310
  Transmission Date: 20150721
  Serious: Yes (Death, Other)
  Sender: FDA-Public Use
  Company Number: PHHY2015BR028149

PATIENT
  Age: 62 Year
  Sex: Male

DRUGS (5)
  1. ONBREZ BREEZHALER [Suspect]
     Active Substance: INDACATEROL
     Indication: RHEUMATOID ARTHRITIS
     Dosage: 3 DF, QD
     Route: 055
     Dates: start: 2010, end: 20130401
  2. ONBREZ BREEZHALER [Suspect]
     Active Substance: INDACATEROL
     Indication: LUNG DISORDER
  3. PREDNISONE. [Suspect]
     Active Substance: PREDNISONE
     Indication: RHEUMATOID ARTHRITIS
     Dosage: SOMETIMES 0.5 DF AND SOMETIMES 1 DF, QD
     Route: 048
     Dates: end: 20130401
  4. PREDNISONE. [Suspect]
     Active Substance: PREDNISONE
     Indication: LUNG DISORDER
  5. REMICADE [Concomitant]
     Active Substance: INFLIXIMAB
     Indication: ARTHRITIS
     Dosage: 1 DF, Q2MO
     Route: 042
     Dates: end: 20130401

REACTIONS (5)
  - Rheumatoid arthritis [Fatal]
  - Product use issue [Unknown]
  - Malaise [Recovering/Resolving]
  - Sepsis [Fatal]
  - Constipation [Recovering/Resolving]

NARRATIVE: CASE EVENT DATE: 2010
